FAERS Safety Report 26133692 (Version 1)
Quarter: 2025Q4

REPORT INFORMATION
  Report Type: Spontaneous
  Country: EU (occurrence: EU)
  Receive Date: 20251209
  Receipt Date: 20251209
  Transmission Date: 20260118
  Serious: Yes (Life-Threatening, Other)
  Sender: SANDOZ
  Company Number: EU-SANDOZ-SDZ2025FR091899

PATIENT
  Age: 81 Year
  Sex: Female

DRUGS (1)
  1. ACLASTA [Suspect]
     Active Substance: ZOLEDRONIC ACID
     Indication: Osteoporosis
     Dosage: 5 MG SOLUTION FOR INFUSION
     Route: 065
     Dates: start: 20251111

REACTIONS (3)
  - Cardiac arrest [Unknown]
  - Joint dislocation [Unknown]
  - Decreased appetite [Unknown]

NARRATIVE: CASE EVENT DATE: 20251111
